FAERS Safety Report 21324690 (Version 1)
Quarter: 2022Q3

REPORT INFORMATION
  Report Type: Report from Study
  Country: ES (occurrence: ES)
  Receive Date: 20220912
  Receipt Date: 20220912
  Transmission Date: 20221026
  Serious: Yes (Other)
  Sender: FDA-Public Use
  Company Number: ES-BAYER-2022A124224

PATIENT
  Age: 58 Year
  Sex: Female

DRUGS (3)
  1. NAPROXEN [Suspect]
     Active Substance: NAPROXEN
  2. PREGABALIN [Suspect]
     Active Substance: PREGABALIN
  3. METAMIZOLE [Suspect]
     Active Substance: METAMIZOLE
     Dosage: UNK

REACTIONS (1)
  - Drug-induced liver injury [None]
